FAERS Safety Report 19004772 (Version 2)
Quarter: 2021Q2

REPORT INFORMATION
  Report Type: Spontaneous
  Country: US (occurrence: US)
  Receive Date: 20210312
  Receipt Date: 20210419
  Transmission Date: 20210717
  Serious: No
  Sender: FDA-Public Use
  Company Number: US-BAYER-2021-102621

PATIENT
  Age: 19 Year
  Sex: Female

DRUGS (1)
  1. GIANVI [Suspect]
     Active Substance: DROSPIRENONE\ETHINYL ESTRADIOL
     Dosage: UNK
     Route: 048

REACTIONS (4)
  - Product dose omission in error [None]
  - Fatigue [Recovering/Resolving]
  - Nausea [Recovering/Resolving]
  - Overdose [None]

NARRATIVE: CASE EVENT DATE: 20020308
